FAERS Safety Report 21280482 (Version 1)
Quarter: 2022Q3

REPORT INFORMATION
  Report Type: Spontaneous
  Country: DK (occurrence: DK)
  Receive Date: 20220901
  Receipt Date: 20220901
  Transmission Date: 20221027
  Serious: Yes (Hospitalization)
  Sender: FDA-Public Use
  Company Number: None

PATIENT
  Age: 70 Year
  Sex: Female

DRUGS (4)
  1. AMOXICILLIN [Suspect]
     Active Substance: AMOXICILLIN
     Indication: Product used for unknown indication
     Dosage: DOSAGE: UNKNOWN, STRENGTH: UNKNOWN
     Route: 065
     Dates: start: 201902, end: 201902
  2. PIPERACILLIN AND TAZOBACTAM [Suspect]
     Active Substance: PIPERACILLIN SODIUM\TAZOBACTAM SODIUM
     Indication: Product used for unknown indication
     Dosage: DOSAGE: UNKNOWN, STRENGTH: UNKNOWN
     Route: 065
     Dates: start: 20190220, end: 201902
  3. CIPROFLOXACIN [Suspect]
     Active Substance: CIPROFLOXACIN
     Indication: Escherichia infection
     Dosage: STRENGTH: UNKNOWN , DOSAGE: UNKNOWN
     Route: 065
     Dates: start: 20190224, end: 201902
  4. METRONIDAZOLE [Suspect]
     Active Substance: METRONIDAZOLE
     Indication: Escherichia infection
     Dosage: DOSAGE: UNKNOWN, STRENGTH: UNKNOWN
     Route: 065
     Dates: start: 20190220, end: 20190227

REACTIONS (5)
  - Clostridium difficile infection [Unknown]
  - Abdominal pain [Recovered/Resolved]
  - Abdominal pain [Recovered/Resolved]
  - Nausea [Recovered/Resolved]
  - Diarrhoea [Recovered/Resolved]

NARRATIVE: CASE EVENT DATE: 20190201
